FAERS Safety Report 25256968 (Version 2)
Quarter: 2025Q2

REPORT INFORMATION
  Report Type: Spontaneous
  Country: US (occurrence: US)
  Receive Date: 20250430
  Receipt Date: 20250602
  Transmission Date: 20250717
  Serious: No
  Sender: DR REDDYS
  Company Number: US-DRL-USA-USA/2025/04/006104

PATIENT
  Age: 21 Year
  Sex: Female
  Weight: 102.51 kg

DRUGS (1)
  1. ZENATANE [Suspect]
     Active Substance: ISOTRETINOIN
     Indication: Acne
     Route: 048
     Dates: start: 202412

REACTIONS (2)
  - Hepatic enzyme increased [Unknown]
  - Blood cholesterol increased [Unknown]
